FAERS Safety Report 17669971 (Version 3)
Quarter: 2020Q2

REPORT INFORMATION
  Report Type: Spontaneous
  Country: US (occurrence: US)
  Receive Date: 20200415
  Receipt Date: 20200508
  Transmission Date: 20200713
  Serious: Yes (Other)
  Sender: FDA-Public Use
  Company Number: US-PFIZER INC-2017371380

PATIENT
  Age: 69 Year
  Sex: Female

DRUGS (2)
  1. IBRANCE [Suspect]
     Active Substance: PALBOCICLIB
     Indication: BREAST CANCER METASTATIC
     Dosage: 125 MG, CYCLIC (125 MG, DAILY; TAKE FOR 3 WEEKS FOLLOWED BY 1 WEEK OFF. TAKE WITH FOOD)
     Route: 048
     Dates: start: 20170824
  2. IBRANCE [Suspect]
     Active Substance: PALBOCICLIB
     Dosage: 125 MG, UNK

REACTIONS (4)
  - Cough [Unknown]
  - Insomnia [Unknown]
  - Pharyngeal disorder [Unknown]
  - Diabetes mellitus [Unknown]
